FAERS Safety Report 5812256-9 (Version None)
Quarter: 2008Q3

REPORT INFORMATION
  Report Type: 
  Country: None (occurrence: None)
  Receive Date: 20080711
  Receipt Date: 20080626
  Transmission Date: 20090109
  Serious: Yes (Hospitalization)
  Sender: FDA-Public Use
  Company Number: 236140J08USA

PATIENT
  Age: 46 Year
  Sex: Female

DRUGS (9)
  1. REBIF [Suspect]
     Indication: MULTIPLE SCLEROSIS
     Dosage: 44 MCG, 3 IN 1 WEEKS, SUBCUTANEOUS
     Route: 058
     Dates: start: 20070626
  2. BACLOFEN [Concomitant]
  3. NEURONTIN [Concomitant]
  4. PROPRANOLOL (PROPRANOLOL /00030001/) [Concomitant]
  5. AMANTADINE (AMANTADINE /00055901/) [Concomitant]
  6. PROZAC [Concomitant]
  7. DEPAKOTE [Concomitant]
  8. XANAX [Concomitant]
  9. DETROL [Concomitant]

REACTIONS (6)
  - BLOOD IRON DECREASED [None]
  - CONCUSSION [None]
  - CONDITION AGGRAVATED [None]
  - FALL [None]
  - INFECTION [None]
  - MULTIPLE SCLEROSIS [None]
